FAERS Safety Report 5730359-4 (Version None)
Quarter: 2008Q2

REPORT INFORMATION
  Report Type: 
  Country: None (occurrence: None)
  Receive Date: 20080502
  Receipt Date: 20080414
  Transmission Date: 20081010
  Serious: Yes (Other)
  Sender: FDA-Public Use
  Company Number: 2008S1006320

PATIENT
  Age: 37 Year
  Sex: Male

DRUGS (5)
  1. TEMAZEPAM [Suspect]
     Indication: SLEEP DISORDER
     Dosage: 10 MG, ORAL
     Route: 048
     Dates: start: 20070824
  2. DIAZEPAM [Concomitant]
     Indication: ANXIETY
     Dosage: 2 MG; ORAL
     Route: 048
     Dates: start: 20070824
  3. CLOZARIL [Suspect]
     Indication: SCHIZOPHRENIA
     Dosage: 100 MG; 40/DAY; ORAL
     Route: 048
     Dates: start: 20070824
  4. CITALOPRAM HYDROBROMIDE [Concomitant]
  5. HYOSCINE [Concomitant]

REACTIONS (2)
  - COMPLETED SUICIDE [None]
  - INTENTIONAL OVERDOSE [None]
